FAERS Safety Report 9700674 (Version 2)
Quarter: 2014Q1

REPORT INFORMATION
  Report Type: Spontaneous
  Country: MX (occurrence: MX)
  Receive Date: 20131121
  Receipt Date: 20140131
  Transmission Date: 20141002
  Serious: Yes (Disabling, Other)
  Sender: FDA-Public Use
  Company Number: PHHY2013MX131790

PATIENT
  Age: 74 Year
  Sex: Female

DRUGS (7)
  1. HYDERGINA [Suspect]
     Indication: MEMORY IMPAIRMENT
     Dosage: 3 DF (1.5MG)
     Route: 048
  2. HYDERGINA [Suspect]
     Dosage: 4.5 MG, UNK
     Route: 048
  3. HYDERGINA [Suspect]
     Dosage: 1.5 MG, UNK
     Route: 048
  4. LIPOIC ACID [Concomitant]
     Indication: PROPHYLAXIS
     Dosage: 0.5
  5. GINKGO BILOBA [Concomitant]
     Dosage: 3 UKN, DAILY
  6. SUKROL [Concomitant]
     Dosage: 2 UKN, DAILY
  7. CHLORTHALIDONE [Concomitant]
     Dosage: 0.25

REACTIONS (13)
  - Blindness [Not Recovered/Not Resolved]
  - Hearing impaired [Not Recovered/Not Resolved]
  - Photophobia [Not Recovered/Not Resolved]
  - Bladder disorder [Not Recovered/Not Resolved]
  - Constipation [Not Recovered/Not Resolved]
  - Malaise [Not Recovered/Not Resolved]
  - Memory impairment [Not Recovered/Not Resolved]
  - Nervousness [Not Recovered/Not Resolved]
  - Decreased appetite [Not Recovered/Not Resolved]
  - Depressed mood [Not Recovered/Not Resolved]
  - Blindness day [Not Recovered/Not Resolved]
  - Lacrimation increased [Not Recovered/Not Resolved]
  - Anxiety [Not Recovered/Not Resolved]
